FAERS Safety Report 10420309 (Version 1)
Quarter: 2014Q3

REPORT INFORMATION
  Report Type: Spontaneous
  Country: US (occurrence: None)
  Receive Date: 20140701
  Receipt Date: 20140701
  Transmission Date: 20150326
  Serious: No
  Sender: FDA-Public Use
  Company Number: 1000066668

PATIENT
  Age: 71 Year
  Sex: Male

DRUGS (11)
  1. DOXAZOSIN(DOXAZOSIN)(DOXAZOSIN) [Concomitant]
  2. ALBUTEROL(ALBUTEROL)(ALBUTEROL) [Concomitant]
  3. ADDERALL(AMPHETAMINENE, DEXTROAMPHETAMINE) [Concomitant]
  4. MONTELUKAST(MONTELUKAST)(MONTELUKAST) [Concomitant]
  5. FENTANYL(FENTANYL)(FENTANYL) [Concomitant]
  6. OXYCODONE(OXYCODONE)(OXYCODONE) [Concomitant]
  7. QVAR(BECLOMETASONE DIPROPIONATE)(BECLOMETASONE DIPROPIONATE) [Concomitant]
  8. ANDROGEL(TESTOSTERONE)(TESTOSTERONE) [Concomitant]
  9. CLONAZEPAM(CLONAZEPAM)(CLONAZEPAM [Concomitant]
  10. PROAIR HFA(SALBUTAMOL SULFATE) (SALBUTAMOL SULFATE) [Concomitant]
  11. LINZESS [Suspect]
     Active Substance: LINACLOTIDE
     Indication: CONSTIPATION
     Route: 048
     Dates: start: 2014

REACTIONS (1)
  - Drug ineffective [None]

NARRATIVE: CASE EVENT DATE: 201403
